FAERS Safety Report 4305278-0 (Version None)
Quarter: 2004Q1

REPORT INFORMATION
  Report Type: 
  Country: None (occurrence: None)
  Receive Date: 20040226
  Receipt Date: 20030130
  Transmission Date: 20041129
  Serious: No
  Sender: FDA-Public Use
  Company Number: US-BRISTOL-MYERS SQUIBB COMPANY-12172615

PATIENT
  Age: 54 Year
  Sex: Female

DRUGS (2)
  1. TAXOL [Suspect]
     Indication: BREAST CANCER
     Dosage: SECOND DOSE ADMINISTERED ON 13-JAN-2003
     Route: 042
     Dates: start: 20030106, end: 20030106
  2. PREVACID [Concomitant]

REACTIONS (1)
  - HEPATIC ENZYME INCREASED [None]
